FAERS Safety Report 9542030 (Version 6)
Quarter: 2014Q1

REPORT INFORMATION
  Report Type: Spontaneous
  Country: US (occurrence: US)
  Receive Date: 20130923
  Receipt Date: 20140115
  Transmission Date: 20141002
  Serious: Yes (Hospitalization, Other)
  Sender: FDA-Public Use
  Company Number: PHEH2006US015718

PATIENT
  Age: 71 Year
  Sex: Male
  Weight: 75.74 kg

DRUGS (21)
  1. AREDIA [Suspect]
     Indication: SPINAL FRACTURE
     Route: 042
     Dates: start: 1999, end: 200301
  2. ZOMETA [Suspect]
     Indication: SPINAL FRACTURE
     Dosage: 4 MG, QW4
     Route: 042
     Dates: start: 20020417, end: 20050815
  3. NITRO PATCH [Concomitant]
  4. NITROGLYCERIN ^DAVID BULL^ [Concomitant]
     Route: 060
  5. KLONOPIN [Concomitant]
     Dosage: 0.5 MG, 2 TAB IN AM, 3 TAB QHS
     Route: 048
  6. NEURONTIN [Concomitant]
     Indication: NEUROPATHY PERIPHERAL
     Dosage: 300 MG, TID
     Route: 048
     Dates: start: 2003
  7. CELEBREX [Concomitant]
     Indication: ARTHRITIS
  8. ZOCOR ^MERCK^ [Concomitant]
     Indication: LIPIDS INCREASED
     Dosage: 20 MG, QD
     Route: 048
  9. PAXIL [Concomitant]
     Dosage: 20 MG, QD
     Route: 048
  10. LESCOL [Concomitant]
     Dosage: 40 MG, QD
     Route: 048
  11. PREVACID [Concomitant]
     Dosage: 30 MG, QHS
     Route: 048
  12. TEMAZEPAM [Concomitant]
     Dosage: 30 MG, QHS
     Route: 048
  13. VICODIN [Concomitant]
  14. SOMA [Concomitant]
  15. ALKERAN [Concomitant]
     Dosage: 2 DF, TID
     Route: 048
  16. PREDNISONE [Concomitant]
     Dosage: 20 MG, TID
  17. PRAVACHOL [Concomitant]
  18. ELAVIL [Concomitant]
     Dosage: 10 MG, QHS
  19. AMOXICILLIN [Concomitant]
  20. AMBIEN [Concomitant]
  21. DEMEROL [Concomitant]
     Dosage: 25 MG,

REACTIONS (160)
  - Rhabdomyolysis [Unknown]
  - Radiculopathy [Not Recovered/Not Resolved]
  - Back pain [Not Recovered/Not Resolved]
  - Dehydration [Unknown]
  - Blood creatine phosphokinase increased [Unknown]
  - Spondylitis [Unknown]
  - Pain in extremity [Unknown]
  - Device malfunction [Unknown]
  - Lumbar spinal stenosis [Unknown]
  - Spinal myelogram [Unknown]
  - Pneumonia [Unknown]
  - Spinal fracture [Unknown]
  - Intervertebral disc degeneration [Unknown]
  - Osteonecrosis of jaw [Unknown]
  - Tooth disorder [Unknown]
  - Jaw disorder [Unknown]
  - Pain in jaw [Unknown]
  - Anxiety [Unknown]
  - Anhedonia [Unknown]
  - Bone disorder [Unknown]
  - Gingival bleeding [Unknown]
  - Erythema [Unknown]
  - Oral pain [Unknown]
  - Impaired healing [Unknown]
  - Plasma cell myeloma [Unknown]
  - Herpes zoster [Unknown]
  - Blood immunoglobulin A increased [Unknown]
  - Secondary immunodeficiency [Unknown]
  - Deep vein thrombosis [Unknown]
  - Injury [Unknown]
  - Pain [Unknown]
  - Neuropathy peripheral [Unknown]
  - Burning sensation [Unknown]
  - Skeletal survey abnormal [Unknown]
  - Mucosal inflammation [Unknown]
  - Osteopenia [Unknown]
  - Iron deficiency anaemia [Unknown]
  - Haemorrhoids [Unknown]
  - Arthralgia [Unknown]
  - Oedema mucosal [Unknown]
  - Pulpitis dental [Unknown]
  - Periodontitis [Unknown]
  - Peripheral coldness [Unknown]
  - Nuclear magnetic resonance imaging abnormal [Unknown]
  - Hyperhidrosis [Recovering/Resolving]
  - Chest pain [Recovering/Resolving]
  - Sleep apnoea syndrome [Unknown]
  - Electrocardiogram abnormal [Unknown]
  - Plantar fasciitis [Unknown]
  - Lipoma [Unknown]
  - Kyphosis [Unknown]
  - Hypercholesterolaemia [Unknown]
  - Diplopia [Unknown]
  - Paraesthesia [Unknown]
  - Acute sinusitis [Unknown]
  - Chronic sinusitis [Unknown]
  - Cerebral atrophy [Unknown]
  - Gliosis [Unknown]
  - Demyelination [Unknown]
  - Angiopathy [Unknown]
  - Fall [Unknown]
  - Compression fracture [Unknown]
  - Ligament sprain [Unknown]
  - Bursitis [Unknown]
  - Tendon disorder [Unknown]
  - Bone cyst [Unknown]
  - Tenosynovitis [Unknown]
  - Insomnia [Unknown]
  - Bronchitis [Unknown]
  - Viral upper respiratory tract infection [Unknown]
  - Actinic keratosis [Unknown]
  - Rectal haemorrhage [Unknown]
  - Rotator cuff syndrome [Unknown]
  - Infection [Unknown]
  - Osteoarthritis [Unknown]
  - Thrombophlebitis [Unknown]
  - Atelectasis [Unknown]
  - Scoliosis [Unknown]
  - Vertebral wedging [Unknown]
  - Toothache [Unknown]
  - Sensitivity of teeth [Unknown]
  - Squamous cell carcinoma [Unknown]
  - Basal cell carcinoma [Unknown]
  - Photodermatosis [Unknown]
  - Pyogenic granuloma [Unknown]
  - Dermal cyst [Unknown]
  - Peptic ulcer [Unknown]
  - Gingivitis [Unknown]
  - Leukopenia [Unknown]
  - Thrombocytopenia [Unknown]
  - Plasmacytosis [Unknown]
  - Vertebral osteophyte [Unknown]
  - Aortic arteriosclerosis [Unknown]
  - Tooth abscess [Unknown]
  - Aortic calcification [Unknown]
  - Sepsis [Unknown]
  - Road traffic accident [Unknown]
  - Cholelithiasis [Unknown]
  - Splenic granuloma [Unknown]
  - Renal cyst [Unknown]
  - Dental caries [Unknown]
  - Spinal osteoarthritis [Unknown]
  - Contusion [Unknown]
  - Spondylolisthesis [Unknown]
  - Procedural complication [Unknown]
  - Pulmonary fibrosis [Unknown]
  - Vascular calcification [Unknown]
  - Bone pain [Unknown]
  - Lymphadenopathy [Unknown]
  - Haemorrhoidal haemorrhage [Unknown]
  - Strabismus [Unknown]
  - Cataract [Unknown]
  - VIth nerve paralysis [Unknown]
  - Migraine [Unknown]
  - Seborrhoeic keratosis [Unknown]
  - Thyroid mass [Unknown]
  - Thyroid cyst [Unknown]
  - Macular fibrosis [Unknown]
  - Goitre [Unknown]
  - Hyperlipidaemia [Unknown]
  - Pulmonary calcification [Unknown]
  - Pulmonary granuloma [Unknown]
  - Bundle branch block right [Unknown]
  - Skin cancer [Unknown]
  - Intervertebral disc space narrowing [Unknown]
  - Hypermetropia [Unknown]
  - Presbyopia [Unknown]
  - Astigmatism [Unknown]
  - Intervertebral disc protrusion [Unknown]
  - Deafness [Unknown]
  - Cataract nuclear [Unknown]
  - Vision blurred [Unknown]
  - Toxic neuropathy [Unknown]
  - Pancytopenia [Unknown]
  - Urinary tract disorder [Unknown]
  - Macrocytosis [Unknown]
  - Dermatitis [Unknown]
  - Cough [Unknown]
  - Respiratory tract congestion [Unknown]
  - Odynophagia [Unknown]
  - Skin lesion [Unknown]
  - Laryngeal oedema [Unknown]
  - Gastrooesophageal reflux disease [Unknown]
  - Monoclonal gammopathy [Unknown]
  - Glaucoma [Unknown]
  - Eye naevus [Unknown]
  - Gait disturbance [Unknown]
  - Dysphagia [Not Recovered/Not Resolved]
  - Choking sensation [Unknown]
  - Major depression [Unknown]
  - Glucose tolerance impaired [Unknown]
  - Suicidal ideation [Unknown]
  - Myalgia [Unknown]
  - Laceration [Unknown]
  - Herpes simplex [Unknown]
  - Dementia [Unknown]
  - Decreased appetite [Unknown]
  - Local swelling [Unknown]
  - Haemorrhage [Unknown]
  - Thyroid neoplasm [Unknown]
